FAERS Safety Report 4561397-5 (Version None)
Quarter: 2005Q1

REPORT INFORMATION
  Report Type: 
  Country: None (occurrence: None)
  Receive Date: 20050126
  Receipt Date: 20050117
  Transmission Date: 20050727
  Serious: Yes (Death, Hospitalization)
  Sender: FDA-Public Use
  Company Number: GB-ROCHE-392730

PATIENT
  Age: 52 Year
  Sex: Male

DRUGS (2)
  1. CAPECITABINE [Suspect]
     Indication: RECTAL CANCER
     Dosage: ON COURSE TWO DAY 14
     Route: 065
     Dates: start: 20041209
  2. OXALIPLATIN [Suspect]
     Indication: RECTAL CANCER
     Dosage: ON COURSE TWO DAY 14
     Route: 065
     Dates: start: 20041209

REACTIONS (2)
  - CARDIAC ARREST [None]
  - CIRCULATORY COLLAPSE [None]
